FAERS Safety Report 22998538 (Version 2)
Quarter: 2023Q4

REPORT INFORMATION
  Report Type: Spontaneous
  Country: US (occurrence: US)
  Receive Date: 20230928
  Receipt Date: 20231110
  Transmission Date: 20240109
  Serious: Yes (Other)
  Sender: FDA-Public Use
  Company Number: IT-AUROBINDO-AUR-APL-2023-059741

PATIENT

DRUGS (1)
  1. SULFAMETHOXAZOLE\TRIMETHOPRIM [Suspect]
     Active Substance: SULFAMETHOXAZOLE\TRIMETHOPRIM
     Indication: Product used for unknown indication
     Dosage: UNK UNK, TWO TIMES A DAY (PRESCRIBED 10 TABLETS)
     Route: 065

REACTIONS (5)
  - Foreign body in throat [Unknown]
  - Choking [Unknown]
  - Product solubility abnormal [Unknown]
  - Product size issue [Unknown]
  - Product physical issue [Unknown]
